FAERS Safety Report 10057000 (Version 2)
Quarter: 2014Q2

REPORT INFORMATION
  Report Type: Spontaneous
  Country: CO (occurrence: CO)
  Receive Date: 20140403
  Receipt Date: 20140422
  Transmission Date: 20141212
  Serious: Yes (Death)
  Sender: FDA-Public Use
  Company Number: CO-BIOMARINAP-CO-2014-102935

PATIENT
  Age: 21 Year
  Sex: Male
  Weight: 21 kg

DRUGS (1)
  1. NAGLAZYME [Suspect]
     Indication: MUCOPOLYSACCHARIDOSIS VI
     Dosage: 20 MG, QW
     Route: 041
     Dates: start: 20080717

REACTIONS (1)
  - Cardiac disorder [Fatal]
